FAERS Safety Report 24864448 (Version 1)
Quarter: 2025Q1

REPORT INFORMATION
  Report Type: Spontaneous
  Country: US (occurrence: US)
  Receive Date: 20250120
  Receipt Date: 20250120
  Transmission Date: 20250409
  Serious: No
  Sender: ABBVIE
  Company Number: US-ABBVIE-6087138

PATIENT

DRUGS (3)
  1. ARMOUR THYROID [Suspect]
     Active Substance: THYROID, PORCINE
     Indication: Product used for unknown indication
     Route: 048
     Dates: start: 202404
  2. ARMOUR THYROID [Suspect]
     Active Substance: THYROID, PORCINE
     Indication: Product used for unknown indication
     Route: 048
  3. ARMOUR THYROID [Suspect]
     Active Substance: THYROID, PORCINE
     Indication: Product used for unknown indication
     Route: 048

REACTIONS (4)
  - Anxiety [Unknown]
  - Palpitations [Unknown]
  - Weight decreased [Unknown]
  - Emotional disorder [Unknown]
